FAERS Safety Report 7744150-0 (Version None)
Quarter: 2011Q3

REPORT INFORMATION
  Report Type: 
  Country: None (occurrence: None)
  Receive Date: 20110912
  Receipt Date: 20110907
  Transmission Date: 20111222
  Serious: No
  Sender: FDA-Public Use
  Company Number: US-PFIZER INC-2011210983

PATIENT
  Sex: Female
  Weight: 78.005 kg

DRUGS (6)
  1. CHANTIX [Suspect]
     Indication: SMOKING CESSATION THERAPY
     Dosage: 0.5 MG, 1X/DAY
     Route: 048
     Dates: start: 20080601, end: 20080701
  2. WELLBUTRIN [Concomitant]
     Dosage: UNK
     Dates: end: 20080901
  3. FOSINOPRIL [Concomitant]
     Indication: TYPE 2 DIABETES MELLITUS
     Dosage: 10 MG, UNK
  4. HYDROCHLOROTHIAZIDE [Concomitant]
     Indication: HYPERTENSION
     Dosage: 100 MG, UNK
  5. GLIMEPIRIDE [Concomitant]
     Dosage: 4 MG, UNK
  6. LIPITOR [Concomitant]
     Indication: BLOOD CHOLESTEROL ABNORMAL
     Dosage: 40 MG, 1X/DAY
     Route: 048

REACTIONS (3)
  - WEIGHT INCREASED [None]
  - WEIGHT DECREASED [None]
  - APPETITE DISORDER [None]
